FAERS Safety Report 8271250-1 (Version None)
Quarter: 2012Q2

REPORT INFORMATION
  Report Type: 
  Country: None (occurrence: None)
  Receive Date: 20120410
  Receipt Date: 20120329
  Transmission Date: 20120825
  Serious: Yes (Hospitalization, Other)
  Sender: FDA-Public Use
  Company Number: JP-PFIZER INC-2012055256

PATIENT
  Age: 40 Year
  Sex: Male
  Weight: 101 kg

DRUGS (8)
  1. LANSOPRAZOLE [Suspect]
     Indication: MYOCARDIAL INFARCTION
     Dosage: 15 MG, DAILY
     Route: 048
     Dates: start: 20120202, end: 20120221
  2. ASPIRIN [Suspect]
     Indication: MYOCARDIAL INFARCTION
     Dosage: 100 MG, DAILY
     Route: 048
     Dates: start: 20120202
  3. LIPITOR [Suspect]
     Indication: MYOCARDIAL INFARCTION
     Dosage: 10 MG, DAILY
     Route: 048
     Dates: start: 20120202, end: 20120221
  4. CARVEDILOL [Suspect]
     Indication: MYOCARDIAL INFARCTION
     Dosage: 5 MG, DAILY
     Route: 048
     Dates: start: 20120215, end: 20120221
  5. SIGMART [Suspect]
     Dosage: UNK
  6. CANDESARTAN CILEXETIL [Suspect]
     Indication: MYOCARDIAL INFARCTION
     Dosage: 8 MG, DAILY
     Route: 048
     Dates: start: 20120202, end: 20120221
  7. PLAVIX [Suspect]
     Indication: MYOCARDIAL INFARCTION
     Dosage: 75 MG, DAILY
     Route: 048
     Dates: start: 20120202, end: 20120221
  8. SIGMART [Suspect]
     Indication: MYOCARDIAL INFARCTION
     Dosage: 5 MG, 3X/DAY
     Route: 048
     Dates: start: 20120202, end: 20120221

REACTIONS (2)
  - WHITE BLOOD CELL COUNT INCREASED [None]
  - TOXIC SKIN ERUPTION [None]
